FAERS Safety Report 19098151 (Version 2)
Quarter: 2021Q2

REPORT INFORMATION
  Report Type: Spontaneous
  Country: JP (occurrence: JP)
  Receive Date: 20210406
  Receipt Date: 20210414
  Transmission Date: 20210717
  Serious: Yes (Other)
  Sender: FDA-Public Use
  Company Number: JP-ACCORD-221604

PATIENT
  Age: 5 Decade
  Sex: Female

DRUGS (15)
  1. URAPIDIL [Concomitant]
     Active Substance: URAPIDIL
  2. AZILSARTAN [Concomitant]
     Active Substance: AZILSARTAN KAMEDOXOMIL
     Indication: HYPERTENSION
  3. DOMPERIDONE [Concomitant]
     Active Substance: DOMPERIDONE
     Indication: SUPPORTIVE CARE
     Dosage: FROM DAY 1 TO NAUSEA DISAPPEARANCE
  4. TRAMADOL. [Concomitant]
     Active Substance: TRAMADOL
     Dosage: 200?300 MG ONCE A DAY
  5. MIRABEGRON [Concomitant]
     Active Substance: MIRABEGRON
  6. VONOPRAZAN [Concomitant]
     Active Substance: VONOPRAZAN
  7. IRINOTECAN [Suspect]
     Active Substance: IRINOTECAN
     Indication: RECTAL CANCER STAGE IV
     Dosage: ON DAY 1, EVERY 2 WEEKS
  8. CALCIUM LEVOFOLINATE [Suspect]
     Active Substance: LEVOLEUCOVORIN CALCIUM
     Indication: RECTAL CANCER STAGE IV
     Dosage: DAY 1, EVERY 2 WEEKS
  9. RAMUCIRUMAB [Suspect]
     Active Substance: RAMUCIRUMAB
     Indication: RECTAL CANCER STAGE IV
     Dosage: EVERY 2 WEEKS
  10. EDOXABAN [Concomitant]
     Active Substance: EDOXABAN TOSYLATE
  11. PALONOSETRON/PALONOSETRON HYDROCHLORIDE [Concomitant]
     Active Substance: PALONOSETRON HYDROCHLORIDE
     Indication: SUPPORTIVE CARE
     Dosage: ON DAY 1
  12. APREPITANT. [Concomitant]
     Active Substance: APREPITANT
     Indication: SUPPORTIVE CARE
     Dosage: ON DAY 1
  13. FLUOROURACIL. [Suspect]
     Active Substance: FLUOROURACIL
     Indication: RECTAL CANCER STAGE IV
     Dosage: DAY 1, EVERY 2 WEEKS , 2400 MG/M2 DAY 1, EVERY 2 WEEKS
  14. DEXAMETHASONE. [Concomitant]
     Active Substance: DEXAMETHASONE
     Indication: SUPPORTIVE CARE
     Dosage: ON DAYS 2 AND 3, 9.9 MG ON DAY 1 INFUSION
     Route: 048
  15. APREPITANT. [Concomitant]
     Active Substance: APREPITANT
     Indication: SUPPORTIVE CARE
     Dosage: DAYS 2 AND 3

REACTIONS (4)
  - Nausea [Unknown]
  - Decreased appetite [Unknown]
  - Fatigue [Unknown]
  - Hypertriglyceridaemia [Recovering/Resolving]
